FAERS Safety Report 6377571-1 (Version None)
Quarter: 2009Q3

REPORT INFORMATION
  Report Type: 
  Country: None (occurrence: None)
  Receive Date: 20090925
  Receipt Date: 20090915
  Transmission Date: 20100115
  Serious: Yes (Hospitalization)
  Sender: FDA-Public Use
  Company Number: US-ROCHE-657055

PATIENT
  Sex: Female

DRUGS (3)
  1. PEG-INTERFERON A-2A (RO 25-8310) [Suspect]
     Indication: DRUG USE FOR UNKNOWN INDICATION
     Route: 065
     Dates: start: 20090630
  2. RIBAVIRIN [Suspect]
     Indication: DRUG USE FOR UNKNOWN INDICATION
     Route: 065
     Dates: start: 20090630
  3. RIBAVIRIN [Suspect]
     Dosage: DOSE DECREASED TO 2 CAPS A DAY.
     Route: 065
     Dates: start: 20090901

REACTIONS (1)
  - TRANSFUSION [None]
